FAERS Safety Report 8559156-1 (Version None)
Quarter: 2012Q3

REPORT INFORMATION
  Report Type: 
  Country: None (occurrence: None)
  Receive Date: 20120802
  Receipt Date: 20120723
  Transmission Date: 20120928
  Serious: No
  Sender: FDA-Public Use
  Company Number: US-009507513-1207USA010634

PATIENT

DRUGS (11)
  1. MECLIZINE [Concomitant]
  2. VITAMIN D (UNSPECIFIED) [Concomitant]
  3. TRAMADOL HYDROCHLORIDE [Concomitant]
  4. COUMADIN [Concomitant]
  5. ZOCOR [Suspect]
     Dosage: 40 MG, QD
     Route: 048
  6. LISINOPRIL [Concomitant]
     Dosage: 10 MG, QD
  7. FENOFIBRATE [Suspect]
     Dosage: 160 MG, QD
     Route: 048
  8. LYRICA [Suspect]
     Dosage: 100 MG, QD
     Route: 048
  9. NEXIUM [Concomitant]
     Dosage: 40 MG, QD
  10. NAPROSYN [Concomitant]
     Dosage: 500 MG, QD
  11. LYRICA [Suspect]
     Dosage: 100 MG, BID
     Route: 048

REACTIONS (4)
  - DRUG INEFFECTIVE [None]
  - PAIN [None]
  - BLOOD TRIGLYCERIDES INCREASED [None]
  - DRUG TOLERANCE [None]
